FAERS Safety Report 11972212 (Version 1)
Quarter: 2016Q1

REPORT INFORMATION
  Report Type: Report from Study
  Country: IL (occurrence: IL)
  Receive Date: 20160128
  Receipt Date: 20160128
  Transmission Date: 20160526
  Serious: Yes (Death)
  Sender: FDA-Public Use
  Company Number: PHHY2016IL010758

PATIENT
  Age: 90 Year
  Sex: Female

DRUGS (1)
  1. SANDOSTATIN LAR DEPOT [Suspect]
     Active Substance: OCTREOTIDE ACETATE
     Indication: PANCREATIC NEUROENDOCRINE TUMOUR
     Dosage: 60 MG, QMO (EVERY FOUR WEEKS)
     Route: 030
     Dates: start: 20100201

REACTIONS (1)
  - Death [Fatal]

NARRATIVE: CASE EVENT DATE: 20160125
